FAERS Safety Report 8818067 (Version 1)
Quarter: 2012Q4

REPORT INFORMATION
  Report Type: 
  Country: US (occurrence: US)
  Receive Date: 20121001
  Receipt Date: 20121001
  Transmission Date: 20130627
  Serious: Yes (Other)
  Sender: FDA-Public Use
  Company Number: US-ASTRAZENECA-2012SE73929

PATIENT
  Age: 59 Year
  Sex: Female

DRUGS (6)
  1. SEROQUEL [Suspect]
     Route: 048
  2. PRILOSEC [Concomitant]
  3. CRESTOR [Concomitant]
  4. LEXAPRO [Concomitant]
  5. RESTORIL [Concomitant]
  6. KLONOPIN [Concomitant]

REACTIONS (4)
  - Lung neoplasm malignant [Unknown]
  - Bipolar disorder [Unknown]
  - Abnormal behaviour [Unknown]
  - Drug dose omission [Unknown]
